FAERS Safety Report 22073595 (Version 1)
Quarter: 2023Q1

REPORT INFORMATION
  Report Type: Spontaneous
  Country: US (occurrence: None)
  Receive Date: 20230308
  Receipt Date: 20230308
  Transmission Date: 20230417
  Serious: Yes (Other)
  Sender: FDA-Public Use
  Company Number: US-ROCHE-3297209

PATIENT
  Age: 53 Year
  Sex: Female
  Weight: 74.910 kg

DRUGS (9)
  1. AVASTIN [Suspect]
     Active Substance: BEVACIZUMAB
     Indication: Product used for unknown indication
     Dosage: 25 MG/ML VIAL
     Route: 065
  2. ZEJULA [Suspect]
     Active Substance: NIRAPARIB
     Indication: Product used for unknown indication
     Dosage: TAKE 2 CAPSULES ORALLY
     Route: 048
     Dates: start: 202207
  3. BIOTIN [Concomitant]
     Active Substance: BIOTIN
  4. LISINOPRIL [Concomitant]
     Active Substance: LISINOPRIL
  5. VITAMINS [Concomitant]
     Active Substance: VITAMINS
  6. IBUPROFEN [Concomitant]
     Active Substance: IBUPROFEN
  7. COMPAZINE [Concomitant]
     Active Substance: PROCHLORPERAZINE MALEATE
  8. METOPROLOL SUCCINATE [Concomitant]
     Active Substance: METOPROLOL SUCCINATE
  9. SERTRALINE HYDROCHLORIDE [Concomitant]
     Active Substance: SERTRALINE HYDROCHLORIDE

REACTIONS (5)
  - Arthralgia [Unknown]
  - Nausea [Unknown]
  - Platelet count decreased [Unknown]
  - Body height decreased [Unknown]
  - Hepatic cancer [Unknown]
